FAERS Safety Report 4893239-2 (Version None)
Quarter: 2006Q1

REPORT INFORMATION
  Report Type: 
  Country: None (occurrence: None)
  Receive Date: 20060124
  Receipt Date: 20060118
  Transmission Date: 20060701
  Serious: No
  Sender: FDA-Public Use
  Company Number: FABR-11239

PATIENT
  Age: 49 Year
  Sex: Male

DRUGS (2)
  1. FABRAZYME [Suspect]
     Indication: FABRY'S DISEASE
     Dosage: 70 MG Q2WKS IV
     Route: 042
     Dates: start: 20051207
  2. FABRAZYME [Suspect]
     Indication: FABRY'S DISEASE
     Dosage: 70 MG Q2WKS IV
     Route: 042
     Dates: start: 20030729, end: 20030601

REACTIONS (6)
  - CHILLS [None]
  - DISEASE RECURRENCE [None]
  - INFUSION SITE REACTION [None]
  - MALAISE [None]
  - OSTEOMYELITIS [None]
  - SKIN ULCER [None]
